FAERS Safety Report 9355578 (Version 2)
Quarter: 2013Q3

REPORT INFORMATION
  Report Type: Spontaneous
  Country: US (occurrence: US)
  Receive Date: 20130619
  Receipt Date: 20130913
  Transmission Date: 20140515
  Serious: No
  Sender: FDA-Public Use
  Company Number: US-009507513-1305USA017757

PATIENT
  Sex: Female
  Weight: 48.73 kg

DRUGS (4)
  1. CLARITIN-D-24 [Suspect]
     Indication: SINUS DISORDER
     Dosage: 10 MG, QD
     Route: 048
  2. CLARITIN-D-24 [Suspect]
     Indication: MEDICAL OBSERVATION
     Dosage: 10 MG, QPM
     Route: 048
  3. CLARITIN [Suspect]
     Indication: SINUS DISORDER
     Dosage: 10 MG, QAM
     Route: 048
  4. CLARITIN [Suspect]
     Indication: MEDICAL OBSERVATION

REACTIONS (2)
  - Drug ineffective [Unknown]
  - Overdose [Unknown]
